FAERS Safety Report 9472878 (Version 1)
Quarter: 2013Q3

REPORT INFORMATION
  Report Type: Spontaneous
  Country: US (occurrence: US)
  Receive Date: 20130823
  Receipt Date: 20130823
  Transmission Date: 20140515
  Serious: No
  Sender: FDA-Public Use
  Company Number: US-PFIZER INC-2013240993

PATIENT
  Age: 63 Year
  Sex: Female
  Weight: 49.89 kg

DRUGS (8)
  1. CHANTIX [Suspect]
     Indication: ATAXIA
     Dosage: 0.5 MG, 2X/DAY
     Dates: start: 20130701
  2. GABAPENTIN [Concomitant]
     Indication: NEURALGIA
     Dosage: 300MG IN THE MORNING AND 600MG AT NIGHT
  3. BUSPIRONE [Concomitant]
     Indication: ANXIETY
     Dosage: 20MG IN THE MORNING , 10MG AT MIDDAY AND 10MG AT NIGHT]
  4. MIRTAZAPINE [Concomitant]
     Indication: INSOMNIA
     Dosage: 30 MG, DAILY
  5. MIRTAZAPINE [Concomitant]
     Indication: APPETITE DISORDER
  6. SIMVASTATIN [Concomitant]
     Indication: BLOOD CHOLESTEROL
     Dosage: 40 MG, DAILY
  7. IDEBENONE [Concomitant]
     Indication: ATAXIA
     Dosage: 500 MG, 2X/DAY
  8. ARGININE [Concomitant]
     Indication: CARDIOVASCULAR DISORDER
     Dosage: 500 MG, DAILY

REACTIONS (6)
  - Off label use [Unknown]
  - Blood creatinine increased [Unknown]
  - Blood albumin increased [Unknown]
  - Alanine aminotransferase increased [Unknown]
  - Aspartate aminotransferase increased [Unknown]
  - Blood alkaline phosphatase increased [Unknown]
